FAERS Safety Report 6275950-4 (Version None)
Quarter: 2009Q3

REPORT INFORMATION
  Report Type: 
  Country: None (occurrence: None)
  Receive Date: 20090721
  Receipt Date: 20090713
  Transmission Date: 20100115
  Serious: Yes (Hospitalization)
  Sender: FDA-Public Use
  Company Number: DE-CVT-090362

PATIENT

DRUGS (15)
  1. RANEXA [Suspect]
     Indication: DRUG USE FOR UNKNOWN INDICATION
     Dosage: 375 MG, BID
     Route: 048
     Dates: start: 20090101, end: 20090531
  2. RANEXA [Suspect]
     Dosage: 375 MG, QD
     Route: 048
     Dates: start: 20090601, end: 20090601
  3. SIMVASTATIN [Suspect]
     Dosage: 20 MG, QD
  4. NEBIVOLOL [Concomitant]
     Dosage: 5 MG, QD
  5. MOLSIDOMINE [Concomitant]
     Dosage: 8 MG, QD
  6. ALLOPURINOL [Concomitant]
     Dosage: 300 MG, QD
  7. PENTAERYTHRITOL TETRANITRATE [Concomitant]
     Dosage: 100 MG, QD
  8. LIMPTAR N [Concomitant]
     Dosage: 1 TABLET, QD
  9. ALVESCO [Concomitant]
     Dosage: 1 PUFF, QD
  10. OXIS /00958002/ [Concomitant]
     Dosage: UNK, QD
  11. SPIRIVA [Concomitant]
     Dosage: 1 UNK, QD
  12. TORSEMIDE [Concomitant]
     Dosage: 5 MG, QD
  13. THYROXIN [Concomitant]
     Dosage: 125 NG, QD
  14. DELIX [Concomitant]
     Dosage: 5 MG, QD
  15. ASPIRIN [Concomitant]
     Dosage: 100 MG, QD

REACTIONS (1)
  - PANCREATITIS [None]
